FAERS Safety Report 9804378 (Version 5)
Quarter: 2014Q3

REPORT INFORMATION
  Report Type: Spontaneous
  Country: US (occurrence: None)
  Receive Date: 20140106
  Receipt Date: 20140923
  Transmission Date: 20150326
  Serious: Yes (Other)
  Sender: FDA-Public Use
  Company Number: 2013P1022140

PATIENT
  Age: 24 Year
  Sex: Female

DRUGS (3)
  1. MYORISAN [Suspect]
     Active Substance: ISOTRETINOIN
     Dates: start: 20131029, end: 20131213
  2. AUGMENTIN [Concomitant]
     Active Substance: AMOXICILLIN\CLAVULANATE POTASSIUM
  3. ORTHO TRI CYCLEN LO [Concomitant]
     Active Substance: ETHINYL ESTRADIOL\NORGESTIMATE

REACTIONS (6)
  - Exposure during pregnancy [None]
  - Device breakage [None]
  - Maternal exposure during pregnancy [None]
  - Incorrect drug administration duration [None]
  - Infection [None]
  - Pregnancy with contraceptive device [None]

NARRATIVE: CASE EVENT DATE: 20131125
